FAERS Safety Report 4843381-7 (Version None)
Quarter: 2005Q4

REPORT INFORMATION
  Report Type: 
  Country: None (occurrence: None)
  Receive Date: 20051201
  Receipt Date: 20051123
  Transmission Date: 20060501
  Serious: Yes (Other)
  Sender: FDA-Public Use
  Company Number: ES-MERCK-0511ESP00033

PATIENT
  Age: 76 Year
  Sex: Male

DRUGS (6)
  1. VIOXX [Suspect]
     Indication: OSTEOARTHRITIS
     Route: 048
     Dates: start: 20021211, end: 20040901
  2. INDAPAMIDE [Concomitant]
     Route: 048
     Dates: start: 19860205, end: 20040203
  3. NIFEDIPINE [Concomitant]
     Route: 048
     Dates: start: 19860205, end: 20040203
  4. TAMSULOSIN HYDROCHLORIDE [Concomitant]
     Route: 048
     Dates: start: 19980302
  5. ASPIRIN [Concomitant]
     Route: 048
     Dates: start: 19980302
  6. GLUCOSAMINE SULFATE [Concomitant]
     Route: 048
     Dates: start: 20021211

REACTIONS (4)
  - ACUTE CORONARY SYNDROME [None]
  - ANGINA PECTORIS [None]
  - BRONCHITIS ACUTE [None]
  - VENTRICULAR FAILURE [None]
